FAERS Safety Report 14099261 (Version 1)
Quarter: 2017Q4

REPORT INFORMATION
  Report Type: Spontaneous
  Country: US (occurrence: US)
  Receive Date: 20171017
  Receipt Date: 20171017
  Transmission Date: 20180321
  Serious: Yes (Hospitalization)
  Sender: FDA-Public Use
  Company Number: US-VYERA PHARMACEUTICALS, LLC-2017VYE00047

PATIENT
  Sex: Male

DRUGS (10)
  1. ATOVAQUONE. [Concomitant]
     Active Substance: ATOVAQUONE
  2. NORVIR [Concomitant]
     Active Substance: RITONAVIR
  3. HYDROMORPHONE [Concomitant]
     Active Substance: HYDROMORPHONE
  4. XANAX [Concomitant]
     Active Substance: ALPRAZOLAM
  5. DARAPRIM [Suspect]
     Active Substance: PYRIMETHAMINE
     Indication: TOXOPLASMOSIS
     Dosage: 50 MG, 1X/DAY
     Route: 048
     Dates: start: 20160601
  6. ABACAVIR. [Concomitant]
     Active Substance: ABACAVIR
  7. METHENAMINE [Concomitant]
     Active Substance: METHENAMINE
  8. TIVICAY [Concomitant]
     Active Substance: DOLUTEGRAVIR SODIUM
  9. PREZISTA [Concomitant]
     Active Substance: DARUNAVIR ETHANOLATE
  10. LEUCOVORIN. [Concomitant]
     Active Substance: LEUCOVORIN

REACTIONS (1)
  - Hospitalisation [Recovered/Resolved]
